FAERS Safety Report 6575925-1 (Version None)
Quarter: 2010Q1

REPORT INFORMATION
  Report Type: 
  Country: None (occurrence: None)
  Receive Date: 20100209
  Receipt Date: 20100203
  Transmission Date: 20100710
  Serious: Yes (Other)
  Sender: FDA-Public Use
  Company Number: US-MYLANLABS-2010S1001573

PATIENT
  Age: 27 Year
  Sex: Female

DRUGS (3)
  1. SOTRET [Suspect]
     Route: 048
     Dates: start: 20090618
  2. AMNESTEEM [Suspect]
     Route: 048
     Dates: start: 20090701, end: 20100116
  3. ORAL CONTRACEPTIVE NOS [Concomitant]

REACTIONS (1)
  - DRUG EXPOSURE DURING PREGNANCY [None]
